FAERS Safety Report 23239321 (Version 1)
Quarter: 2023Q4

REPORT INFORMATION
  Report Type: Spontaneous
  Country: US (occurrence: US)
  Receive Date: 20231129
  Receipt Date: 20231129
  Transmission Date: 20240110
  Serious: No
  Sender: FDA-Public Use
  Company Number: US-drreddys-SPO/USA/23/0183198

PATIENT
  Age: 17 Year
  Sex: Female

DRUGS (1)
  1. ZENATANE [Suspect]
     Active Substance: ISOTRETINOIN
     Indication: Product used for unknown indication
     Dosage: RMA ISSUE DATES: 27 APRIL 2023 11:24:08 AM, 25 MAY 2023 03:36:49 PM, 23 JUNE 2023 07:46:24 PM, 04 AU

REACTIONS (1)
  - Tinea versicolour [Unknown]
